FAERS Safety Report 15956515 (Version 1)
Quarter: 2019Q1

REPORT INFORMATION
  Report Type: Spontaneous
  Country: JP (occurrence: JP)
  Receive Date: 20190213
  Receipt Date: 20190213
  Transmission Date: 20190417
  Serious: Yes (Death, Hospitalization)
  Sender: FDA-Public Use
  Company Number: JP-MYLANLABS-2019M1012613

PATIENT
  Age: 75 Year
  Sex: Male

DRUGS (16)
  1. DOCETAXEL. [Suspect]
     Active Substance: DOCETAXEL
     Indication: PROSTATE CANCER METASTATIC
     Route: 065
  2. ENZALUTAMIDE [Suspect]
     Active Substance: ENZALUTAMIDE
     Indication: METASTASES TO BONE
  3. ESTRAMUSTINE [Suspect]
     Active Substance: ESTRAMUSTINE
     Indication: METASTASES TO BONE
  4. FLUTAMIDE. [Suspect]
     Active Substance: FLUTAMIDE
     Indication: PROSTATE CANCER METASTATIC
     Route: 065
  5. TEGAFUR W/URACIL [Suspect]
     Active Substance: TEGAFUR\URACIL
     Indication: METASTASES TO BONE
  6. ZOLEDRONIC ACID [Suspect]
     Active Substance: ZOLEDRONIC ACID
     Indication: METASTASES TO BONE
  7. CABAZITAXEL [Suspect]
     Active Substance: CABAZITAXEL
     Indication: METASTASES TO BONE
  8. FLUTAMIDE. [Suspect]
     Active Substance: FLUTAMIDE
     Indication: METASTASES TO BONE
  9. TEGAFUR W/URACIL [Suspect]
     Active Substance: TEGAFUR\URACIL
     Indication: PROSTATE CANCER METASTATIC
     Route: 065
  10. ESTRAMUSTINE [Suspect]
     Active Substance: ESTRAMUSTINE
     Indication: PROSTATE CANCER METASTATIC
     Route: 065
  11. CABAZITAXEL [Suspect]
     Active Substance: CABAZITAXEL
     Indication: PROSTATE CANCER METASTATIC
     Route: 065
  12. ENZALUTAMIDE [Suspect]
     Active Substance: ENZALUTAMIDE
     Indication: PROSTATE CANCER METASTATIC
     Route: 065
  13. ABIRATERONE ACETATE. [Suspect]
     Active Substance: ABIRATERONE ACETATE
     Indication: PROSTATE CANCER METASTATIC
     Route: 065
  14. ABIRATERONE ACETATE. [Suspect]
     Active Substance: ABIRATERONE ACETATE
     Indication: METASTASES TO BONE
  15. DOCETAXEL. [Suspect]
     Active Substance: DOCETAXEL
     Indication: METASTASES TO BONE
  16. ZOLEDRONIC ACID [Suspect]
     Active Substance: ZOLEDRONIC ACID
     Indication: PROSTATE CANCER METASTATIC
     Dosage: RECEIVED A TOTAL DOSE OF 48 MG
     Route: 065

REACTIONS (11)
  - Haemorrhage [Fatal]
  - Shock haemorrhagic [Fatal]
  - Jaw fistula [Unknown]
  - Infection [Unknown]
  - Abscess jaw [Unknown]
  - Osteonecrosis of jaw [Fatal]
  - Altered state of consciousness [Fatal]
  - Stupor [Unknown]
  - Tooth loss [Not Recovered/Not Resolved]
  - Jaw fracture [Not Recovered/Not Resolved]
  - Pathological fracture [Not Recovered/Not Resolved]
